FAERS Safety Report 12598008 (Version 2)
Quarter: 2016Q4

REPORT INFORMATION
  Report Type: Report from Study
  Country: BR (occurrence: BR)
  Receive Date: 20160727
  Receipt Date: 20161021
  Transmission Date: 20170207
  Serious: Yes (Other)
  Sender: FDA-Public Use
  Company Number: PHHY2016BR102082

PATIENT
  Sex: Female
  Weight: 52 kg

DRUGS (1)
  1. ACLASTA [Suspect]
     Active Substance: ZOLEDRONIC ACID
     Indication: OSTEOPOROSIS
     Dosage: 5 MG, Q12MO
     Route: 042

REACTIONS (9)
  - Spinal pain [Recovering/Resolving]
  - Myalgia [Recovering/Resolving]
  - Joint swelling [Recovering/Resolving]
  - Chikungunya virus infection [Recovering/Resolving]
  - Pain in extremity [Recovering/Resolving]
  - Vitamin D decreased [Recovering/Resolving]
  - Peripheral swelling [Recovering/Resolving]
  - Joint stiffness [Recovering/Resolving]
  - Musculoskeletal pain [Recovering/Resolving]
